FAERS Safety Report 19356971 (Version 10)
Quarter: 2021Q4

REPORT INFORMATION
  Report Type: Report from Study
  Country: US (occurrence: US)
  Receive Date: 20210601
  Receipt Date: 20211222
  Transmission Date: 20220303
  Serious: Yes (Death, Hospitalization, Other)
  Sender: FDA-Public Use
  Company Number: NVSC2021US121677

PATIENT
  Sex: Male

DRUGS (3)
  1. ENTRESTO [Suspect]
     Active Substance: SACUBITRIL\VALSARTAN
     Indication: Product used for unknown indication
     Dosage: 1 DF, BID (24.26 MG)
     Route: 048
     Dates: start: 202103
  2. SPIRONOLACTONE [Suspect]
     Active Substance: SPIRONOLACTONE
     Indication: Product used for unknown indication
     Dosage: UNK
     Route: 065
  3. LISINOPRIL [Suspect]
     Active Substance: LISINOPRIL
     Indication: Product used for unknown indication
     Route: 065

REACTIONS (11)
  - Death [Fatal]
  - COVID-19 [Unknown]
  - Dyspnoea [Not Recovered/Not Resolved]
  - Cough [Not Recovered/Not Resolved]
  - Heart rate increased [Unknown]
  - Gynaecomastia [Unknown]
  - Hypersensitivity [Recovering/Resolving]
  - Nasopharyngitis [Recovering/Resolving]
  - Viral infection [Recovering/Resolving]
  - Wrong product administered [Unknown]
  - Product dose omission issue [Unknown]
